FAERS Safety Report 5995412-9 (Version None)
Quarter: 2008Q4

REPORT INFORMATION
  Report Type: 
  Country: None (occurrence: None)
  Receive Date: 20081212
  Receipt Date: 20080929
  Transmission Date: 20090506
  Serious: No
  Sender: FDA-Public Use
  Company Number: US-ABBOTT-08P-163-0478715-00

PATIENT
  Sex: Female
  Weight: 72.186 kg

DRUGS (8)
  1. HUMIRA [Suspect]
     Indication: CROHN'S DISEASE
     Route: 050
     Dates: start: 20080814
  2. PREDNISONE TAB [Suspect]
     Indication: CROHN'S DISEASE
     Route: 048
  3. PREDNISONE TAB [Concomitant]
     Route: 048
     Dates: start: 20080601
  4. PREDNISONE TAB [Concomitant]
     Dosage: VARIOUS DOSES
     Route: 048
     Dates: start: 19960101, end: 20080929
  5. PREDNISONE TAB [Concomitant]
     Route: 048
     Dates: start: 20080930
  6. MESALAMINE [Concomitant]
     Indication: CROHN'S DISEASE
     Route: 048
     Dates: start: 20080601
  7. CYANOCOBALAMIN [Concomitant]
     Indication: DRUG USE FOR UNKNOWN INDICATION
     Route: 050
  8. CHOLESTYRAMINE [Concomitant]
     Indication: DRUG USE FOR UNKNOWN INDICATION
     Route: 048

REACTIONS (7)
  - BACK PAIN [None]
  - CANDIDIASIS [None]
  - FATIGUE [None]
  - HEADACHE [None]
  - INJECTION SITE HAEMATOMA [None]
  - OROPHARYNGEAL PAIN [None]
  - THROAT IRRITATION [None]
